FAERS Safety Report 8811408 (Version 1)
Quarter: 2012Q4

REPORT INFORMATION
  Report Type: 
  Country: US (occurrence: US)
  Receive Date: 20120927
  Receipt Date: 20120927
  Transmission Date: 20130627
  Serious: Yes (Other)
  Sender: FDA-Public Use
  Company Number: US-PFIZER INC-2012238250

PATIENT
  Age: 33 Year
  Sex: Female
  Weight: 100.23 kg

DRUGS (14)
  1. LOPID [Suspect]
     Dosage: 600 mg, 2x/day
     Route: 048
  2. ASPIRIN [Concomitant]
     Dosage: 81 mg, daily
  3. CALCIUM [Concomitant]
     Dosage: 1 DF, 2x/day (1 tab twice daily)
  4. COD-LIVER OIL [Concomitant]
     Dosage: 1 DF, 2x/day
  5. METFORMIN HYDROCHLORIDE [Concomitant]
     Dosage: 1000 mg, 2x/day (1 tab twice daily)
  6. B COMPLEX [Concomitant]
     Dosage: 1 DF, daily
  7. VITAMIN B12 [Concomitant]
     Dosage: 1 DF, daily
  8. CINNAMON [Concomitant]
     Dosage: 1 DF, 2x/day
  9. NIACIN [Concomitant]
     Dosage: 1000 mg, 1 tab 2x/day
  10. RED YEAST RICE [Concomitant]
     Dosage: 1200 mg, 1 tab 2x/day
  11. SAW PALMETTO [Concomitant]
     Dosage: 1 DF, daily
  12. GLIPIZIDE [Concomitant]
     Dosage: 10 mg, 1 tab 2x/day
  13. GARLIC OIL [Concomitant]
     Dosage: 1 DF, 2x/day
  14. VITEX [Concomitant]
     Dosage: 1 DF, daily

REACTIONS (4)
  - Umbilical haemorrhage [Unknown]
  - Surgery [Unknown]
  - Pain [Unknown]
  - Abdominal pain [Recovered/Resolved]
